FAERS Safety Report 6269524-9 (Version None)
Quarter: 2009Q3

REPORT INFORMATION
  Report Type: 
  Country: None (occurrence: None)
  Receive Date: 20090715
  Receipt Date: 20090310
  Transmission Date: 20100115
  Serious: No
  Sender: FDA-Public Use
  Company Number: US-TYCO HEALTHCARE/MALLINCKRODT-T200900652

PATIENT

DRUGS (3)
  1. OXYCODONE HCL [Suspect]
     Indication: BREAKTHROUGH PAIN
     Dosage: 5 MG, UNK
     Dates: start: 20090101
  2. OXYCONTIN [Concomitant]
     Indication: PAIN
     Dosage: UNK, BID (1 Q12 HRS)
     Dates: start: 20000101
  3. OXYCODONE [Concomitant]
     Dosage: NORMALLY 2/DAY
     Dates: start: 20000101

REACTIONS (3)
  - ABDOMINAL PAIN UPPER [None]
  - DRUG INEFFECTIVE [None]
  - INCORRECT DOSE ADMINISTERED [None]
